FAERS Safety Report 18708501 (Version 3)
Quarter: 2021Q2

REPORT INFORMATION
  Report Type: Report from Study
  Country: US (occurrence: US)
  Receive Date: 20210106
  Receipt Date: 20210622
  Transmission Date: 20210717
  Serious: No
  Sender: FDA-Public Use
  Company Number: NVSC2021US002204

PATIENT
  Sex: Male

DRUGS (2)
  1. MAYZENT [Suspect]
     Active Substance: SIPONIMOD
     Indication: MULTIPLE SCLEROSIS
     Dosage: 1 MG, QD
     Route: 048
  2. MAYZENT [Suspect]
     Active Substance: SIPONIMOD
     Dosage: 1 MG ( LESS THAN 1 MG FOR 2 DAYS)
     Route: 048

REACTIONS (4)
  - Amnesia [Unknown]
  - Gait disturbance [Recovering/Resolving]
  - Blood pressure increased [Unknown]
  - Product dose omission issue [Unknown]
